FAERS Safety Report 25338716 (Version 1)
Quarter: 2025Q2

REPORT INFORMATION
  Report Type: Report from Study
  Country: US (occurrence: US)
  Receive Date: 20250520
  Receipt Date: 20250520
  Transmission Date: 20250717
  Serious: Yes (Other)
  Sender: ALEXION PHARMACEUTICALS
  Company Number: US-AstraZeneca-CH-00872872A

PATIENT

DRUGS (1)
  1. DAPAGLIFLOZIN [Suspect]
     Active Substance: DAPAGLIFLOZIN
     Route: 065

REACTIONS (6)
  - Diabetes mellitus [Unknown]
  - Myocardial infarction [Unknown]
  - Heat stroke [Unknown]
  - Rib fracture [Unknown]
  - Fall [Unknown]
  - General physical health deterioration [Unknown]
